FAERS Safety Report 9472620 (Version 4)
Quarter: 2020Q3

REPORT INFORMATION
  Report Type: Report from Study
  Country: JP (occurrence: JP)
  Receive Date: 20130823
  Receipt Date: 20140813
  Transmission Date: 20201105
  Serious: Yes (Hospitalization, Other)
  Sender: FDA-Public Use
  Company Number: JP-ASTELLAS-2013US008953

PATIENT
  Age: 73 Year
  Sex: Male

DRUGS (19)
  1. ONARTUZUMAB. [Suspect]
     Active Substance: ONARTUZUMAB
     Indication: NON-SMALL CELL LUNG CANCER
     Dosage: 15 MG/KG, 1 IN 3 WEEKS
     Route: 042
     Dates: start: 20130528, end: 20130712
  2. VOGLIBOSE [Concomitant]
     Active Substance: VOGLIBOSE
     Indication: DIABETES MELLITUS
     Dosage: 0.2 MG, THRICE DAILY
     Route: 048
  3. GLYCYRON                           /00466401/ [Concomitant]
     Indication: HEPATIC FUNCTION ABNORMAL
     Route: 048
     Dates: start: 20130607
  4. CHLORHEXIDINE GLUCONATE. [Concomitant]
     Active Substance: CHLORHEXIDINE GLUCONATE
     Indication: PARONYCHIA
     Route: 003
     Dates: start: 20130802
  5. AZUNOL                             /00317302/ [Concomitant]
     Indication: STOMATITIS
     Route: 049
     Dates: start: 20130614
  6. ALLOPURINOL. [Concomitant]
     Active Substance: ALLOPURINOL
     Indication: HYPERURICAEMIA
     Route: 048
  7. MINOPEN [Concomitant]
     Active Substance: MINOCYCLINE HYDROCHLORIDE
     Indication: DERMATITIS ACNEIFORM
     Route: 048
     Dates: start: 20130712
  8. DIPROCEL [Concomitant]
     Indication: DERMATITIS ACNEIFORM
     Route: 003
     Dates: start: 20130802
  9. RINDERON VG [Concomitant]
     Active Substance: BETAMETHASONE VALERATE\GENTAMICIN SULFATE
     Indication: DERMATITIS ACNEIFORM
     Route: 003
     Dates: start: 20130802
  10. ERLOTINIB [Suspect]
     Active Substance: ERLOTINIB
     Indication: NON-SMALL CELL LUNG CANCER
     Route: 048
     Dates: start: 20130528, end: 20130802
  11. ANTEBATE [Concomitant]
     Active Substance: BETAMETHASONE DIPROPIONATE
     Indication: DERMATITIS ACNEIFORM
     Route: 003
     Dates: start: 20130802
  12. ALMETA [Concomitant]
     Active Substance: ALCLOMETASONE DIPROPIONATE
     Indication: DERMATITIS ACNEIFORM
     Route: 003
     Dates: start: 20130802
  13. URSODEOXYCHOLIC ACID [Concomitant]
     Active Substance: URSODIOL
     Indication: HEPATIC FUNCTION ABNORMAL
     Route: 048
     Dates: start: 20130610
  14. ALLELOCK [Concomitant]
     Active Substance: OLOPATADINE HYDROCHLORIDE
     Indication: DERMATITIS ACNEIFORM
     Route: 048
     Dates: start: 20130802
  15. DEXALTIN [Concomitant]
     Active Substance: DEXAMETHASONE
     Indication: STOMATITIS
     Route: 061
     Dates: start: 20130614
  16. ACUATIM [Concomitant]
     Active Substance: NADIFLOXACIN
     Indication: DERMATITIS ACNEIFORM
     Route: 003
     Dates: start: 20130802
  17. VITAMIN A                          /00056001/ [Concomitant]
     Active Substance: RETINOL
     Indication: DERMATITIS ACNEIFORM
     Route: 003
     Dates: start: 20130802
  18. HIRUDOID                           /00723701/ [Concomitant]
     Indication: DERMATITIS ACNEIFORM
     Route: 003
     Dates: start: 20130802
  19. WHITE PETROLATUM [Concomitant]
     Active Substance: PETROLATUM
     Indication: DERMATITIS ACNEIFORM
     Route: 003
     Dates: start: 20130802

REACTIONS (5)
  - Dermatitis acneiform [Unknown]
  - Diabetes mellitus [Recovering/Resolving]
  - Decreased appetite [Recovered/Resolved]
  - Dehydration [Recovered/Resolved]
  - Hypophagia [Unknown]

NARRATIVE: CASE EVENT DATE: 20130802
